FAERS Safety Report 5920215-0 (Version None)
Quarter: 2008Q4

REPORT INFORMATION
  Report Type: 
  Country: None (occurrence: None)
  Receive Date: 20081016
  Receipt Date: 20080818
  Transmission Date: 20090506
  Serious: No
  Sender: FDA-Public Use
  Company Number: A0741166A

PATIENT
  Sex: Female

DRUGS (1)
  1. CEFTIN [Suspect]
     Route: 048

REACTIONS (4)
  - DYSGEUSIA [None]
  - DYSPHAGIA [None]
  - FOREIGN BODY TRAUMA [None]
  - NECK INJURY [None]
